FAERS Safety Report 16215086 (Version 1)
Quarter: 2019Q2

REPORT INFORMATION
  Report Type: Spontaneous
  Country: US (occurrence: US)
  Receive Date: 20190418
  Receipt Date: 20190418
  Transmission Date: 20190711
  Serious: Yes (Hospitalization)
  Sender: FDA-Public Use
  Company Number: None

PATIENT
  Age: 25 Year
  Sex: Female
  Weight: 73 kg

DRUGS (4)
  1. NUVARING [Suspect]
     Active Substance: ETHINYL ESTRADIOL\ETONOGESTREL
  2. OMEPRAZOLE 20 MG DAILY [Concomitant]
  3. ONDANSETRON 4MG TAB QID PRN [Concomitant]
  4. LORATADINE 10MG DAILY [Concomitant]

REACTIONS (3)
  - Swollen tongue [None]
  - Eye swelling [None]
  - Drug hypersensitivity [None]

NARRATIVE: CASE EVENT DATE: 20190411
